FAERS Safety Report 23902515 (Version 1)
Quarter: 2024Q2

REPORT INFORMATION
  Report Type: Spontaneous
  Country: US (occurrence: US)
  Receive Date: 20240527
  Receipt Date: 20240527
  Transmission Date: 20240716
  Serious: Yes (Hospitalization)
  Sender: FDA-Public Use
  Company Number: US-STERISCIENCE B.V.-2024-ST-000688

PATIENT
  Age: 55 Year
  Sex: Male

DRUGS (4)
  1. ACETYLCYSTEINE [Suspect]
     Active Substance: ACETYLCYSTEINE
     Indication: Liver injury
     Dosage: RECEIVED 3 BAG INFUSION
     Route: 065
  2. ACETYLCYSTEINE [Suspect]
     Active Substance: ACETYLCYSTEINE
     Indication: Toxicity to various agents
     Dosage: UNK
     Route: 065
  3. FOMEPIZOLE [Concomitant]
     Active Substance: FOMEPIZOLE
     Indication: Liver injury
     Dosage: UNK
     Route: 065
  4. FOMEPIZOLE [Concomitant]
     Active Substance: FOMEPIZOLE
     Indication: Toxicity to various agents

REACTIONS (1)
  - Rebound effect [Unknown]
